FAERS Safety Report 19870551 (Version 1)
Quarter: 2021Q3

REPORT INFORMATION
  Report Type: Report from Study
  Country: HK (occurrence: HK)
  Receive Date: 20210922
  Receipt Date: 20210922
  Transmission Date: 20211014
  Serious: Yes (Death, Hospitalization)
  Sender: FDA-Public Use
  Company Number: HK-MYLANLABS-2021M1064801

PATIENT

DRUGS (1)
  1. HALOPERIDOL. [Suspect]
     Active Substance: HALOPERIDOL
     Indication: AGITATION
     Dosage: SECOND DOSE AFTER 33MIN OF THE FIRST DOSE
     Route: 030

REACTIONS (1)
  - Cardiac arrest [Fatal]
